FAERS Safety Report 14609228 (Version 1)
Quarter: 2018Q1

REPORT INFORMATION
  Report Type: Spontaneous
  Country: DE (occurrence: DE)
  Receive Date: 20180307
  Receipt Date: 20180307
  Transmission Date: 20180509
  Serious: Yes (Hospitalization, Other)
  Sender: FDA-Public Use
  Company Number: DE-SA-2018SA052683

PATIENT
  Sex: Male
  Weight: 55 kg

DRUGS (15)
  1. HUMIRA [Suspect]
     Active Substance: ADALIMUMAB
     Indication: HIDRADENITIS
     Route: 058
     Dates: end: 20170722
  2. DEKRISTOL [Concomitant]
     Active Substance: CHOLECALCIFEROL
  3. ZOLPIDEM TARTRATE. [Suspect]
     Active Substance: ZOLPIDEM TARTRATE
     Route: 048
     Dates: start: 20170729, end: 20170810
  4. HUMIRA [Suspect]
     Active Substance: ADALIMUMAB
     Indication: HIDRADENITIS
     Route: 058
     Dates: start: 20170801
  5. PANTOPRAZOL [Suspect]
     Active Substance: PANTOPRAZOLE SODIUM
     Route: 065
     Dates: start: 20170729, end: 20170810
  6. HUMIRA [Suspect]
     Active Substance: ADALIMUMAB
     Indication: PSORIASIS
     Route: 058
     Dates: start: 20160412
  7. MORPHINE [Suspect]
     Active Substance: MORPHINE
     Route: 042
     Dates: start: 20170729, end: 20170810
  8. HUMIRA [Suspect]
     Active Substance: ADALIMUMAB
     Indication: PSORIASIS
     Route: 058
     Dates: end: 20170722
  9. TRAMAL LONG [Suspect]
     Active Substance: TRAMADOL
     Route: 065
     Dates: start: 20170729, end: 20170810
  10. MORPHINE [Suspect]
     Active Substance: MORPHINE
     Dosage: DOSAGE TEXT: IN ADDITION, IF REQUIRED
     Route: 042
     Dates: start: 20170729, end: 20170810
  11. NOVAMINSULFON [Suspect]
     Active Substance: METAMIZOLE
     Route: 065
     Dates: start: 20170729, end: 20170810
  12. IBUPROFEN. [Concomitant]
     Active Substance: IBUPROFEN
     Route: 065
  13. HUMIRA [Suspect]
     Active Substance: ADALIMUMAB
     Indication: HIDRADENITIS
     Route: 058
     Dates: start: 20160412
  14. HUMIRA [Suspect]
     Active Substance: ADALIMUMAB
     Indication: PSORIASIS
     Route: 058
     Dates: start: 20170801
  15. TRAMAL [Suspect]
     Active Substance: TRAMADOL
     Dosage: FREQUENCY: 3 TIMES PER DAY AS REQUIRED
     Route: 065
     Dates: start: 20170729, end: 20170810

REACTIONS (4)
  - Pneumothorax spontaneous [Recovered/Resolved]
  - Abscess [Recovering/Resolving]
  - Psoriasis [Not Recovered/Not Resolved]
  - Pneumothorax spontaneous [Recovered/Resolved]

NARRATIVE: CASE EVENT DATE: 20160501
